FAERS Safety Report 23823959 (Version 1)
Quarter: 2024Q2

REPORT INFORMATION
  Report Type: Spontaneous
  Country: US (occurrence: US)
  Receive Date: 20240507
  Receipt Date: 20240507
  Transmission Date: 20240716
  Serious: No
  Sender: FDA-Public Use
  Company Number: US-CIPLA LTD.-2023US04639

PATIENT

DRUGS (3)
  1. ALBUTEROL [Suspect]
     Active Substance: ALBUTEROL
     Indication: Bronchitis
     Dosage: 180 MCG (2 PUFFS) EVERY 4-6 HOURS
     Dates: start: 20230616, end: 2023
  2. ALBUTEROL [Suspect]
     Active Substance: ALBUTEROL
     Dosage: 180 MCG (2 PUFFS) EVERY 4-6 HOURS
     Dates: start: 20230616, end: 2023
  3. DOXYCYCLINE [Concomitant]
     Active Substance: DOXYCYCLINE
     Indication: Bronchitis
     Dosage: UNK, B.I.D. FOR 7 DAYS

REACTIONS (5)
  - Off label use [Unknown]
  - Device delivery system issue [Unknown]
  - Drug ineffective [Unknown]
  - Product cleaning inadequate [Unknown]
  - Device mechanical issue [Unknown]

NARRATIVE: CASE EVENT DATE: 20230616
